FAERS Safety Report 7729603-3 (Version None)
Quarter: 2011Q3

REPORT INFORMATION
  Report Type: 
  Country: None (occurrence: None)
  Receive Date: 20110906
  Receipt Date: 20110826
  Transmission Date: 20111222
  Serious: Yes (Hospitalization)
  Sender: FDA-Public Use
  Company Number: US-BAYER-201041615NA

PATIENT
  Age: 39 Year
  Sex: Female
  Weight: 108.84 kg

DRUGS (3)
  1. FLEXERIL [Concomitant]
     Dosage: 10 MG, UNK
     Route: 048
  2. DROSPIRENONE AND ETHINYL ESTRADIOL [Suspect]
     Indication: PRODUCT USED FOR UNKNOWN INDICATION
     Dosage: UNK UNK, UNK
     Route: 048
     Dates: start: 20090501, end: 20091101
  3. TRIAZOLAM [Concomitant]
     Dosage: 0.25 MG, UNK
     Route: 048

REACTIONS (4)
  - PAIN [None]
  - DEEP VEIN THROMBOSIS [None]
  - OEDEMA PERIPHERAL [None]
  - DYSSTASIA [None]
